FAERS Safety Report 6600644-2 (Version None)
Quarter: 2010Q1

REPORT INFORMATION
  Report Type: 
  Country: None (occurrence: None)
  Receive Date: 20100223
  Receipt Date: 20100223
  Transmission Date: 20100710
  Serious: Yes (Life-Threatening)
  Sender: FDA-Public Use
  Company Number: None

PATIENT
  Age: 64 Year
  Sex: Male
  Weight: 71.6683 kg

DRUGS (1)
  1. PREDNISONE [Suspect]
     Indication: MYALGIA
     Dosage: 10MG 1 TABLET PER DAY PO
     Route: 048
     Dates: start: 20091201, end: 20100222

REACTIONS (1)
  - DIABETES MELLITUS [None]
